FAERS Safety Report 25284133 (Version 1)
Quarter: 2025Q2

REPORT INFORMATION
  Report Type: Spontaneous
  Country: US (occurrence: None)
  Receive Date: 20250508
  Receipt Date: 20250508
  Transmission Date: 20250717
  Serious: Yes (Hospitalization)
  Sender: FDA-CTU
  Company Number: None

PATIENT
  Sex: Female

DRUGS (11)
  1. ORENCIA [Suspect]
     Active Substance: ABATACEPT
     Indication: Rheumatoid arthritis
     Dosage: FREQUENCY : WEEKLY;?
     Route: 058
     Dates: start: 20200204
  2. AMLODIPINE [Concomitant]
     Active Substance: AMLODIPINE BESYLATE
  3. ASPIRIN LOW TAB [Concomitant]
  4. ATORVASTATIN [Concomitant]
     Active Substance: ATORVASTATIN
  5. CHANTIX [Concomitant]
     Active Substance: VARENICLINE TARTRATE
  6. CYCLOBENZAPR TAB [Concomitant]
  7. DULOXETINE [Concomitant]
     Active Substance: DULOXETINE
  8. GABAPENTI N [Concomitant]
  9. METHOTREXATE [Concomitant]
     Active Substance: METHOTREXATE
  10. MIRTAZAPINE [Concomitant]
     Active Substance: MIRTAZAPINE
  11. NORCO [Concomitant]
     Active Substance: ACETAMINOPHEN\HYDROCODONE BITARTRATE

REACTIONS (3)
  - Drug ineffective [None]
  - Quality of life decreased [None]
  - Pain [None]
